FAERS Safety Report 6846158-6 (Version None)
Quarter: 2010Q3

REPORT INFORMATION
  Report Type: 
  Country: None (occurrence: None)
  Receive Date: 20100712
  Receipt Date: 20100629
  Transmission Date: 20110219
  Serious: Yes (Other)
  Sender: FDA-Public Use
  Company Number: US-JNJFOC-20100700824

PATIENT
  Sex: 0

DRUGS (4)
  1. DECITABINE (DECITABINE) LYOPHILIZED POWDER [Suspect]
     Indication: MYELODYSPLASTIC SYNDROME
     Dosage: 20 MG/M2, 1 IN 1 DAY, INTRAVENOUS (NOT OTHERWISE SPECIFIE
     Route: 042
  2. DECITABINE (DECITABINE) LYOPHILIZED POWDER [Suspect]
     Indication: MYELOID LEUKAEMIA
     Dosage: 20 MG/M2, 1 IN 1 DAY, INTRAVENOUS (NOT OTHERWISE SPECIFIE
     Route: 042
  3. GEMTUZUMAB OZOGAMICIN (GEMTUZUMAB OZOGAMICIN) INJECTION [Suspect]
     Indication: MYELODYSPLASTIC SYNDROME
     Dosage: 3 MG/M2 INTRAVENOUS
     Route: 042
  4. GEMTUZUMAB OZOGAMICIN (GEMTUZUMAB OZOGAMICIN) INJECTION [Suspect]
     Indication: MYELOID LEUKAEMIA
     Dosage: 3 MG/M2 INTRAVENOUS
     Route: 042

REACTIONS (1)
  - TRANSIENT ISCHAEMIC ATTACK [None]
